FAERS Safety Report 8717179 (Version 4)
Quarter: 2013Q1

REPORT INFORMATION
  Report Type: Spontaneous
  Country: FR (occurrence: FR)
  Receive Date: 20120810
  Receipt Date: 20130201
  Transmission Date: 20140127
  Serious: Yes (Death, Other)
  Sender: FDA-Public Use
  Company Number: PHHY2012FR068005

PATIENT
  Age: 66 Year
  Sex: Male

DRUGS (54)
  1. LOXEN LP [Suspect]
     Dosage: 50 MG, QD
     Route: 048
     Dates: start: 20120206, end: 20120415
  2. SANDIMMUN [Suspect]
     Indication: BONE MARROW TRANSPLANT
     Dosage: 190 MG, DAILY
     Route: 042
     Dates: start: 20120123
  3. SANDIMMUN [Suspect]
     Dosage: 170 MG, UNK
     Route: 042
     Dates: start: 20120125
  4. SANDIMMUN [Suspect]
     Dosage: 140 MG, DAILY
     Route: 042
     Dates: start: 20120127
  5. SANDIMMUN [Suspect]
     Dosage: 90 MG, UNK
     Route: 042
     Dates: start: 20120131
  6. SANDIMMUN [Suspect]
     Dosage: 100 MG, DAILY
     Dates: start: 20120209
  7. SANDIMMUN [Suspect]
     Dosage: 120 MG, UNK
     Route: 042
     Dates: start: 20120211
  8. SANDIMMUN [Suspect]
     Dosage: 140 MG, UNK
     Route: 042
     Dates: start: 20120215
  9. SANDIMMUN [Suspect]
     Dosage: 120 MG, UNK
     Route: 042
     Dates: start: 20120227
  10. SANDIMMUN [Suspect]
     Dosage: 100 MG, DAILY
     Dates: start: 20120304
  11. SANDIMMUN [Suspect]
     Dosage: DECREASE IN DOSE
     Dates: start: 20120312
  12. SANDIMMUN [Suspect]
     Dosage: 110 MG, DAILY
     Dates: start: 20120315
  13. SANDIMMUN [Suspect]
     Dosage: 110 MG, DAILY
     Route: 042
     Dates: start: 20120316
  14. SANDIMMUN [Suspect]
     Dosage: 80 MG, UNK
     Route: 042
     Dates: start: 20120319
  15. SANDIMMUN [Suspect]
     Dosage: 70 MG, DAILY
     Route: 042
     Dates: start: 20120323
  16. SANDIMMUN [Suspect]
     Dosage: 90 MG, DAILY
     Route: 042
     Dates: start: 20120325
  17. SANDIMMUN [Suspect]
     Dosage: 70 MG, DAILY
     Route: 042
     Dates: start: 20120327
  18. SANDIMMUN [Suspect]
     Dosage: 50 MG, DAILY
     Route: 042
     Dates: start: 20120330
  19. SANDIMMUN [Suspect]
     Dosage: 30 MG, DAILY
     Dates: start: 20120403
  20. ROVALCYTE [Suspect]
     Indication: CYTOMEGALOVIRUS INFECTION
     Dosage: 900 MG, QD
     Route: 048
     Dates: start: 20120309, end: 20120317
  21. VFEND [Suspect]
     Indication: ASPERGILLUS INFECTION
     Dosage: 400 UKN, QD
     Route: 042
     Dates: start: 201110, end: 20120511
  22. HEPARIN CALCIUM [Suspect]
     Indication: PROPHYLAXIS
     Dosage: 7500 (UNITS UNKNOWN), ONCE DAILY
     Route: 042
     Dates: start: 20120122, end: 20120322
  23. ALBUMIN HUMAN [Suspect]
     Dosage: 20 G, QD
     Route: 042
     Dates: start: 20120224, end: 20120306
  24. ALBUMIN HUMAN [Suspect]
     Dosage: 20 G, UNK
     Route: 042
     Dates: start: 20120312, end: 20120507
  25. METHYLPREDNISOLONE [Suspect]
     Indication: IMMUNOSUPPRESSION
     Dosage: 80 MG, BID
     Route: 042
     Dates: start: 20120218, end: 20120308
  26. METHYLPREDNISOLONE [Suspect]
     Dosage: UNK UKN, UNK
     Route: 042
     Dates: start: 20120308, end: 20120511
  27. LEVOTHYROX [Suspect]
     Indication: HYPOTHYROIDISM
     Dosage: 150 UG, QD
     Route: 042
     Dates: start: 2009, end: 20120511
  28. URSOLVAN [Suspect]
     Indication: CHOLESTASIS
     Dosage: 1.5 G, UNK
     Route: 048
  29. URSOLVAN [Suspect]
     Dosage: 1.5 G, UNK
     Route: 048
     Dates: start: 20120119, end: 20120511
  30. STILNOX [Suspect]
     Indication: INSOMNIA
     Dosage: 10 MG, QD
     Route: 048
     Dates: end: 20120318
  31. MOPRAL [Suspect]
     Indication: PROPHYLAXIS
     Route: 042
  32. ORACILLINE [Suspect]
     Indication: CYTOMEGALOVIRUS INFECTION
     Dosage: 1 MIU, QD
     Route: 048
     Dates: start: 20120221, end: 20120322
  33. BACTRIM FORTE [Suspect]
     Indication: CYTOMEGALOVIRUS INFECTION
     Dosage: 3 DF, WEEKLY
     Route: 048
     Dates: start: 20120118, end: 20120120
  34. BACTRIM FORTE [Suspect]
     Dosage: 3 DF,WEEKLY
     Route: 048
     Dates: start: 20120221, end: 20120405
  35. TIORFAN [Suspect]
     Indication: PROPHYLAXIS AGAINST DIARRHOEA
     Dosage: 2 G, TID
     Route: 048
     Dates: start: 20120222, end: 20120425
  36. SPECIAFOLDINE [Suspect]
     Indication: VITAMIN SUPPLEMENTATION
     Dosage: 5 MG, QD
     Dates: start: 20120223, end: 20120405
  37. EFFEXOR [Suspect]
     Indication: DEPRESSION
     Dosage: 75 MG, QD
     Route: 048
     Dates: start: 20120313, end: 20120322
  38. TRANXENE [Suspect]
     Indication: ANXIETY
     Dosage: UNK UKN, UNK
     Route: 048
     Dates: start: 20120129, end: 20120316
  39. PLITICAN [Suspect]
     Indication: PROPHYLAXIS
     Dosage: UNK UKN, UNK
     Route: 042
     Dates: start: 20120119, end: 20120319
  40. ZOLPIDEM [Suspect]
     Indication: INSOMNIA
     Dosage: 10 MG, QD
     Route: 048
     Dates: start: 20120214, end: 20120318
  41. INEXIUM [Suspect]
     Indication: GASTRODUODENAL ULCER
     Dosage: 20 MG, QD
     Dates: start: 20120119, end: 20120511
  42. FUROSEMIDE [Suspect]
     Indication: OEDEMA PERIPHERAL
     Dosage: UNK UKN, UNK
     Dates: start: 20120224
  43. CELLCEPT [Suspect]
     Indication: BONE MARROW TRANSPLANT
     Dosage: 500 MG, BID
     Route: 042
     Dates: start: 20120123, end: 20120123
  44. CELLCEPT [Suspect]
     Dosage: 1 G, BID
     Route: 042
     Dates: start: 20120124, end: 20120124
  45. CELLCEPT [Suspect]
     Dosage: 500 MG, BID
     Route: 042
     Dates: start: 20120304, end: 20120306
  46. CELLCEPT [Suspect]
     Dosage: 1 G, BID
     Route: 042
     Dates: start: 20120327, end: 20120511
  47. VIDAZA [Concomitant]
     Dates: start: 201102
  48. FOSCAVIR [Concomitant]
     Dosage: 6 G, BID
     Dates: start: 20120225, end: 20120309
  49. FOSCAVIR [Concomitant]
     Dosage: 6 G, BID
     Dates: start: 20120506
  50. SANDOGLOBULIN [Concomitant]
     Indication: CYTOMEGALOVIRUS INFECTION
     Dosage: 100 MG/KG, DAILY
     Dates: start: 20120119, end: 20120126
  51. ENDOXAN [Concomitant]
     Dosage: UNK UKN, UNK
     Dates: start: 20120120, end: 20120124
  52. FLUDARABIN [Concomitant]
     Indication: BONE MARROW TRANSPLANT
     Dosage: UNK UKN, UNK
     Dates: start: 20120123
  53. CYMEVAN [Concomitant]
     Dates: end: 20120506
  54. IRRADIATION [Concomitant]
     Dosage: 2 GY

REACTIONS (19)
  - Thrombotic microangiopathy [Fatal]
  - Multi-organ failure [Fatal]
  - Graft versus host disease [Fatal]
  - Renal failure [Unknown]
  - Renal impairment [Unknown]
  - Kussmaul respiration [Unknown]
  - Nervous system disorder [Unknown]
  - Confusional state [Unknown]
  - Thrombocytopenic purpura [Unknown]
  - Thrombocytopenia [Unknown]
  - Haemolysis [Unknown]
  - Graft versus host disease in liver [Unknown]
  - Human herpesvirus 6 infection [Unknown]
  - Epstein-Barr virus infection [Unknown]
  - Cytomegalovirus infection [Unknown]
  - Haematotoxicity [Unknown]
  - Hyperuricaemia [Unknown]
  - Haptoglobin abnormal [Unknown]
  - Red blood cell schistocytes present [Unknown]
